FAERS Safety Report 25981020 (Version 2)
Quarter: 2025Q4

REPORT INFORMATION
  Report Type: Report from Study
  Country: CA (occurrence: CA)
  Receive Date: 20251030
  Receipt Date: 20251107
  Transmission Date: 20260118
  Serious: Yes (Hospitalization, Other)
  Sender: HLS THERAPEUTICS
  Company Number: CA-HLS-202200576

PATIENT
  Age: 32 Year
  Sex: Male

DRUGS (4)
  1. CLOZARIL [Suspect]
     Active Substance: CLOZAPINE
     Indication: Schizophrenia
     Route: 048
     Dates: start: 20220117
  2. CLOZARIL [Suspect]
     Active Substance: CLOZAPINE
     Indication: Schizophrenia
     Route: 065
     Dates: start: 202201, end: 20220310
  3. HALOPERIDOL [Concomitant]
     Active Substance: HALOPERIDOL
     Indication: Psychotic symptom
     Route: 065
  4. INVEGA SUSTENNA [Concomitant]
     Active Substance: PALIPERIDONE PALMITATE
     Indication: Psychotic symptom
     Route: 065

REACTIONS (10)
  - Mental impairment [Unknown]
  - Dizziness [Unknown]
  - Psychotic symptom [Not Recovered/Not Resolved]
  - Tachycardia [Unknown]
  - Sleep disorder [Unknown]
  - Decreased appetite [Unknown]
  - Hallucinations, mixed [Unknown]
  - Depressed mood [Unknown]
  - Orthostatic hypotension [Not Recovered/Not Resolved]
  - Suicidal ideation [Unknown]
